FAERS Safety Report 5603133-7 (Version None)
Quarter: 2008Q1

REPORT INFORMATION
  Report Type: 
  Country: None (occurrence: None)
  Receive Date: 20080125
  Receipt Date: 20080114
  Transmission Date: 20080703
  Serious: Yes (Other)
  Sender: FDA-Public Use
  Company Number: FR-PFIZER INC-2008006284

PATIENT
  Sex: Male

DRUGS (6)
  1. DOXAZOSIN MESYLATE [Suspect]
     Indication: ENURESIS
  2. SOTALOL HCL [Concomitant]
  3. ELISOR [Concomitant]
  4. AMLOR [Concomitant]
  5. DIAMICRON [Concomitant]
  6. COAPROVEL [Concomitant]

REACTIONS (2)
  - ECZEMA [None]
  - PRURITUS [None]
